FAERS Safety Report 15473131 (Version 2)
Quarter: 2018Q4

REPORT INFORMATION
  Report Type: Spontaneous
  Country: US (occurrence: US)
  Receive Date: 20181008
  Receipt Date: 20181102
  Transmission Date: 20190205
  Serious: No
  Sender: FDA-Public Use
  Company Number: US-ASTRAZENECA-2018SF17402

PATIENT
  Sex: Female
  Weight: 124.7 kg

DRUGS (3)
  1. ATRIVENT [Concomitant]
  2. PULMICORT FLEXHALER [Suspect]
     Active Substance: BUDESONIDE
     Indication: ASTHMA
     Route: 055
     Dates: start: 201801
  3. ALBUTEROL. [Concomitant]
     Active Substance: ALBUTEROL

REACTIONS (5)
  - Dyspnoea [Not Recovered/Not Resolved]
  - Device malfunction [Unknown]
  - Chest discomfort [Not Recovered/Not Resolved]
  - Product dose omission [Not Recovered/Not Resolved]
  - Intentional device misuse [Not Recovered/Not Resolved]
